FAERS Safety Report 21902343 (Version 8)
Quarter: 2023Q2

REPORT INFORMATION
  Report Type: Report from Study
  Country: BR (occurrence: None)
  Receive Date: 20230124
  Receipt Date: 20230411
  Transmission Date: 20230722
  Serious: Yes (Hospitalization)
  Sender: FDA-Public Use
  Company Number: BR-ROCHE-3269269

PATIENT
  Age: 66 Year
  Sex: Male
  Weight: 68 kg

DRUGS (14)
  1. MOSUNETUZUMAB [Suspect]
     Active Substance: MOSUNETUZUMAB
     Indication: B-cell lymphoma
     Dosage: MOST RECENT DOSE OF STUDY DRUG PRIOR TO AE/SAE; 18/JAN/2023, 45 MG
     Route: 058
     Dates: start: 20230112
  2. POLATUZUMAB VEDOTIN [Suspect]
     Active Substance: POLATUZUMAB VEDOTIN
     Indication: B-cell lymphoma
     Dosage: MOST RECENT DOSE OF STUDY DRUG PRIOR TO AE/SAE; 12/JAN/2023, 122.4 MG
     Route: 042
     Dates: start: 20230112
  3. METOPROLOL SUCCINATE [Concomitant]
     Active Substance: METOPROLOL SUCCINATE
     Indication: Atrial fibrillation
     Route: 048
     Dates: start: 202206, end: 20230119
  4. DIGOXIN [Concomitant]
     Active Substance: DIGOXIN
  5. FUROSEMIDE [Concomitant]
     Active Substance: FUROSEMIDE
  6. GLICLAZIDE [Concomitant]
     Active Substance: GLICLAZIDE
  7. EVOGLIPTIN [Concomitant]
     Active Substance: EVOGLIPTIN
  8. NPH INSULIN [Concomitant]
     Active Substance: INSULIN BEEF
  9. PANTOPRAZOLE [Concomitant]
     Active Substance: PANTOPRAZOLE
  10. APIXABAN [Concomitant]
     Active Substance: APIXABAN
     Route: 048
     Dates: start: 202206
  11. ATORVASTATIN [Concomitant]
     Active Substance: ATORVASTATIN
  12. ACETAMINOPHEN [Concomitant]
     Active Substance: ACETAMINOPHEN
     Indication: Premedication
     Route: 048
     Dates: start: 20230112
  13. DEXAMETHASONE [Concomitant]
     Active Substance: DEXAMETHASONE
     Indication: Premedication
     Route: 048
     Dates: start: 20230112
  14. DIPHENHYDRAMINE [Concomitant]
     Active Substance: DIPHENHYDRAMINE
     Route: 042
     Dates: start: 20230112

REACTIONS (1)
  - Tachycardia [Recovered/Resolved]

NARRATIVE: CASE EVENT DATE: 20230118
